FAERS Safety Report 17928585 (Version 1)
Quarter: 2020Q2

REPORT INFORMATION
  Report Type: Spontaneous
  Country: DE (occurrence: DE)
  Receive Date: 20200623
  Receipt Date: 20200623
  Transmission Date: 20200714
  Serious: Yes (Hospitalization)
  Sender: FDA-Public Use
  Company Number: DE-TEVA-2020-DE-1789214

PATIENT
  Age: 76 Year
  Sex: Male
  Weight: 59 kg

DRUGS (13)
  1. METAMIZOL [Concomitant]
     Active Substance: METAMIZOLE SODIUM
     Dosage: 30 GTT DAILY; 500 MG, 30-0-0-0, DROPS
     Route: 048
  2. CARVEDILOL. [Suspect]
     Active Substance: CARVEDILOL
     Dosage: 25 MILLIGRAM DAILY; 1-0-0-0
     Route: 048
  3. FLUTICASON/SALMETEROL [Concomitant]
     Dosage: 250|50 MG, 1-0-1-0, AEROSOL DOSING
     Route: 055
  4. METAMIZOL [Concomitant]
     Active Substance: METAMIZOLE SODIUM
     Dosage: 500 MG, 3X, DROPS
     Route: 048
  5. TIOTROPIUMBROMID [Concomitant]
     Dosage: 18 MICROGRAM DAILY; 18 MCG, 1-0-0-0, AEROSOL DOSING
     Route: 055
  6. ACETYLSALICYLSAURE [Concomitant]
     Active Substance: ASPIRIN
     Dosage: 100 MILLIGRAM DAILY;  0-1-0-0
     Route: 048
  7. FUROSEMID [Concomitant]
     Active Substance: FUROSEMIDE
     Dosage: 40 MILLIGRAM DAILY;  1-0-0-0
     Route: 048
  8. LORAZEPAM. [Concomitant]
     Active Substance: LORAZEPAM
     Dosage: 1 MILLIGRAM DAILY; 0-0-0-1
     Route: 048
  9. TICAGRELOR. [Concomitant]
     Active Substance: TICAGRELOR
     Dosage: 180 MILLIGRAM DAILY; 1-0-1-0
     Route: 048
  10. MITOMYCIN. [Suspect]
     Active Substance: MITOMYCIN
     Dosage: NK MG, ACCORDING TO THE SCHEME
  11. PANTOPRAZOL [Concomitant]
     Active Substance: PANTOPRAZOLE SODIUM
     Dosage: 40 MILLIGRAM DAILY; 1-0-0-0
     Route: 048
  12. ATORVASTATIN [Concomitant]
     Active Substance: ATORVASTATIN
     Dosage: 40 MILLIGRAM DAILY;  0-0-1-0
     Route: 048
  13. CANDESARTAN. [Concomitant]
     Active Substance: CANDESARTAN
     Dosage: 4 MILLIGRAM DAILY; 8 MG, 0.5-0-0-0
     Route: 048

REACTIONS (4)
  - Condition aggravated [Unknown]
  - General physical health deterioration [Unknown]
  - Dyspnoea [Unknown]
  - Cough [Unknown]
